FAERS Safety Report 5721993-6 (Version None)
Quarter: 2008Q2

REPORT INFORMATION
  Report Type: 
  Country: None (occurrence: None)
  Receive Date: 20080429
  Receipt Date: 20080423
  Transmission Date: 20081010
  Serious: Yes (Death)
  Sender: FDA-Public Use
  Company Number: TH-BOEHRINGER INGELHEIM GMBH, GERMANY-2008-DE-02428GD

PATIENT

DRUGS (4)
  1. NEVIRAPINE [Suspect]
     Indication: HIV INFECTION
  2. ANTI-HIV AGENTS [Concomitant]
     Indication: HIV INFECTION
  3. RIFAMPICIN [Concomitant]
     Indication: DISSEMINATED TUBERCULOSIS
  4. ANTI-TUBERCULOUS AGENTS [Concomitant]
     Indication: DISSEMINATED TUBERCULOSIS

REACTIONS (1)
  - MYCOBACTERIUM AVIUM COMPLEX INFECTION [None]
